FAERS Safety Report 9319379 (Version 1)
Quarter: 2013Q2

REPORT INFORMATION
  Report Type: Spontaneous
  Country: US (occurrence: None)
  Receive Date: 20130529
  Receipt Date: 20130529
  Transmission Date: 20140414
  Serious: Yes (Life-Threatening)
  Sender: FDA-Public Use
  Company Number: None

PATIENT
  Age: 60 Year
  Sex: Female
  Weight: 84.37 kg

DRUGS (2)
  1. OXCARBAZEPINE [Suspect]
     Indication: WEIGHT INCREASED
     Dates: start: 20130502
  2. OXCARBAZEPINE [Suspect]
     Indication: MOVEMENT DISORDER
     Dates: start: 20130502

REACTIONS (1)
  - Suicidal ideation [None]
